FAERS Safety Report 9067835 (Version 1)
Quarter: 2013Q1

REPORT INFORMATION
  Report Type: Spontaneous
  Country: SE (occurrence: SE)
  Receive Date: 20130215
  Receipt Date: 20130215
  Transmission Date: 20140127
  Serious: Yes (Other)
  Sender: FDA-Public Use
  Company Number: SE-009507513-1302SWE005260

PATIENT
  Age: 84 Year
  Sex: Female

DRUGS (3)
  1. ALENDRONATE SODIUM [Suspect]
     Dosage: 70 MG, WEEKLY
     Route: 048
  2. CALCICHEW D3 [Concomitant]
  3. LEVAXIN [Concomitant]

REACTIONS (1)
  - Venous thrombosis [Not Recovered/Not Resolved]
